FAERS Safety Report 12061653 (Version 1)
Quarter: 2016Q1

REPORT INFORMATION
  Report Type: Spontaneous
  Country: DE (occurrence: DE)
  Receive Date: 20160210
  Receipt Date: 20160210
  Transmission Date: 20160526
  Serious: Yes (Life-Threatening)
  Sender: FDA-Public Use
  Company Number: DE-TEVA-631920GER

PATIENT
  Age: 22 Year
  Sex: Female
  Weight: 50 kg

DRUGS (1)
  1. DIAZEPAM 10 MG [Suspect]
     Active Substance: DIAZEPAM
     Dosage: BY NIGHT
     Route: 048

REACTIONS (2)
  - Cardiac arrest [Recovered/Resolved]
  - Respiratory depression [Unknown]
